FAERS Safety Report 5091282-4 (Version None)
Quarter: 2006Q3

REPORT INFORMATION
  Report Type: 
  Country: None (occurrence: None)
  Receive Date: 20060829
  Receipt Date: 20060725
  Transmission Date: 20061208
  Serious: Yes (Death, Hospitalization)
  Sender: FDA-Public Use
  Company Number: US-AVENTIS-200616169US

PATIENT
  Sex: Female
  Weight: 91 kg

DRUGS (6)
  1. LOVENOX [Suspect]
     Indication: PULMONARY EMBOLISM
     Dates: start: 20060721, end: 20060722
  2. LOVENOX [Suspect]
     Indication: CARDIAC FAILURE CONGESTIVE
     Dates: start: 20060721, end: 20060722
  3. LOPRESSOR [Suspect]
     Dosage: DOSE: UNK
     Route: 042
     Dates: start: 20060721
  4. EPHEDRA [Concomitant]
  5. ASPIRIN [Concomitant]
     Route: 048
     Dates: start: 20060721
  6. LASIX [Concomitant]
     Route: 042
     Dates: start: 20060721

REACTIONS (10)
  - ANAEMIA [None]
  - CARDIAC FAILURE CONGESTIVE [None]
  - CARDIOGENIC SHOCK [None]
  - HAEMOGLOBIN DECREASED [None]
  - METABOLIC ACIDOSIS [None]
  - MUSCLE HAEMORRHAGE [None]
  - MYOCARDIAL INFARCTION [None]
  - PULMONARY OEDEMA [None]
  - RENAL FAILURE [None]
  - RESPIRATORY FAILURE [None]
